FAERS Safety Report 9178264 (Version 2)
Quarter: 2013Q2

REPORT INFORMATION
  Report Type: Spontaneous
  Country: US (occurrence: US)
  Receive Date: 20130321
  Receipt Date: 20130410
  Transmission Date: 20140414
  Serious: Yes (Life-Threatening, Hospitalization, Disabling, Other)
  Sender: FDA-Public Use
  Company Number: US-GLAXOSMITHKLINE-A1015974A

PATIENT
  Age: 70 Year
  Sex: Male
  Weight: 75 kg

DRUGS (18)
  1. BENLYSTA [Suspect]
     Indication: SYSTEMIC LUPUS ERYTHEMATOSUS
     Dosage: 10MGK EVERY TWO WEEKS
     Route: 042
     Dates: start: 201302, end: 201303
  2. BUTRANS [Concomitant]
  3. LIPITOR [Concomitant]
  4. TRAMADOL [Concomitant]
  5. CYMBALTA [Concomitant]
  6. SINGULAIR [Concomitant]
  7. INDERAL [Concomitant]
  8. PLAQUENIL [Concomitant]
  9. PREDNISONE [Concomitant]
  10. ARICEPT [Concomitant]
  11. FOLGARD [Concomitant]
  12. ARTHROTEC [Concomitant]
  13. ECOTRIN [Concomitant]
  14. TRAMADOL + ACETAMINOPHEN [Concomitant]
  15. FOLIC ACID [Concomitant]
  16. ANDROGEL [Concomitant]
  17. LIDODERM [Concomitant]
  18. INDERAL LA [Concomitant]

REACTIONS (8)
  - Grand mal convulsion [Recovering/Resolving]
  - Loss of consciousness [Recovering/Resolving]
  - Tonic clonic movements [Unknown]
  - Cerebral haemorrhage [Unknown]
  - Cerebral amyloid angiopathy [Unknown]
  - Hypersensitivity [Recovering/Resolving]
  - Confusional state [Unknown]
  - Syncope [Unknown]
